FAERS Safety Report 7796904-2 (Version None)
Quarter: 2011Q4

REPORT INFORMATION
  Report Type: 
  Country: None (occurrence: None)
  Receive Date: 20111005
  Receipt Date: 20110928
  Transmission Date: 20120403
  Serious: Yes (Hospitalization)
  Sender: FDA-Public Use
  Company Number: FR-ASTELLAS-2011EU006716

PATIENT
  Sex: Female

DRUGS (9)
  1. METOPROLOL TARTRATE [Concomitant]
     Dosage: 200 DF, UID/QD
     Route: 065
  2. ESIDRIX [Concomitant]
     Dosage: 25 DF, UID/QD
     Route: 065
  3. ENTECAVIR [Concomitant]
     Dosage: 0.5 MG, UID/QD
     Route: 065
  4. PANTOPRAZOLE SODIUM [Concomitant]
     Dosage: 40 MG, BID
     Route: 065
  5. PROGRAF [Suspect]
     Indication: LIVER TRANSPLANT
     Dosage: 6 MG, BID
     Route: 048
     Dates: start: 20110810, end: 20110814
  6. POTASSIUM CHLORIDE [Concomitant]
     Dosage: UNK
     Route: 065
  7. PROGRAF [Suspect]
     Dosage: 1.5 MG, BID
     Route: 065
     Dates: start: 20110820
  8. ATACAND [Concomitant]
     Dosage: 16 DF, UID/QD
     Route: 065
  9. TRAMADOL HCL [Concomitant]
     Dosage: 200 DF, BID
     Route: 065

REACTIONS (3)
  - ACCIDENTAL OVERDOSE [None]
  - PALPITATIONS [None]
  - DYSPNOEA [None]
